FAERS Safety Report 8599761-X (Version None)
Quarter: 2012Q3

REPORT INFORMATION
  Report Type: 
  Country: None (occurrence: None)
  Receive Date: 20120816
  Receipt Date: 20120810
  Transmission Date: 20120928
  Serious: Yes (Death, Other)
  Sender: FDA-Public Use
  Company Number: BR-ROCHE-1100802

PATIENT
  Age: 47 Year
  Sex: Female

DRUGS (5)
  1. XOLAIR [Suspect]
     Indication: PRODUCT USED FOR UNKNOWN INDICATION
     Dates: start: 20100414, end: 20110725
  2. AMLODIPINE [Concomitant]
  3. PREDNISONE TAB [Concomitant]
  4. FUROSEMIDE [Concomitant]
  5. OMEPRAZOLE [Concomitant]

REACTIONS (4)
  - NEPHROLITHIASIS [None]
  - CARDIAC FAILURE [None]
  - KIDNEY INFECTION [None]
  - RESPIRATORY FAILURE [None]
